FAERS Safety Report 20314536 (Version 2)
Quarter: 2022Q1

REPORT INFORMATION
  Report Type: Report from Study
  Country: US (occurrence: None)
  Receive Date: 20220110
  Receipt Date: 20220207
  Transmission Date: 20220424
  Serious: Yes (Hospitalization, Other)
  Sender: FDA-Public Use
  Company Number: US-ROCHE-2965945

PATIENT
  Age: 53 Year
  Sex: Male
  Weight: 125 kg

DRUGS (11)
  1. VENETOCLAX [Suspect]
     Active Substance: VENETOCLAX
     Indication: Diffuse large B-cell lymphoma
     Dosage: MOST RECENT DOSE OF VENETOCLAX ON 16/NOV/2021.
     Route: 048
     Dates: start: 20211021
  2. VENETOCLAX [Suspect]
     Active Substance: VENETOCLAX
     Route: 048
     Dates: start: 20211215
  3. RITUXIMAB [Suspect]
     Active Substance: RITUXIMAB
     Indication: Diffuse large B-cell lymphoma
     Dosage: MOST RECENT DOSE OF RITUXIMAB ON 16/NOV/2021.
     Route: 041
     Dates: start: 20211021
  4. RITUXIMAB [Suspect]
     Active Substance: RITUXIMAB
     Route: 042
     Dates: start: 20211215
  5. CARBOPLATIN [Suspect]
     Active Substance: CARBOPLATIN
     Indication: Diffuse large B-cell lymphoma
     Dosage: FORM STRENGTH: 10MG/ML?MOST RECENT DOSE OF CARBOPLATIN ON 17/NOV/2021.
     Route: 042
     Dates: start: 20211022
  6. CARBOPLATIN [Suspect]
     Active Substance: CARBOPLATIN
     Dosage: FORM STRENGTH: 10MG/ML
     Route: 042
     Dates: start: 20211216
  7. IFOSFAMIDE [Suspect]
     Active Substance: IFOSFAMIDE
     Indication: Diffuse large B-cell lymphoma
     Dosage: MOST RECENT DOSE OF IFOSFAMIDE ON 17/NOV/2021.
     Route: 042
     Dates: start: 20211022
  8. ETOPOSIDE [Suspect]
     Active Substance: ETOPOSIDE
     Indication: Diffuse large B-cell lymphoma
     Dosage: MOST RECENT DOSE OF ETOPOSIDE ON 16/NOV/2021.
     Route: 042
     Dates: start: 20211021
  9. ETOPOSIDE [Suspect]
     Active Substance: ETOPOSIDE
     Route: 042
     Dates: start: 20211215, end: 20211217
  10. PEGFILGRASTIM [Concomitant]
     Active Substance: PEGFILGRASTIM
     Dosage: MOST RECENT DOSE ON 20/NOV/2021
     Dates: start: 20211026
  11. COVID-19 VACCINE [Concomitant]

REACTIONS (4)
  - Neutrophil count decreased [Recovered/Resolved]
  - COVID-19 [Unknown]
  - Neutropenia [Unknown]
  - Thrombocytopenia [Unknown]

NARRATIVE: CASE EVENT DATE: 20211029
